FAERS Safety Report 12618398 (Version 2)
Quarter: 2016Q3

REPORT INFORMATION
  Report Type: Spontaneous
  Country: US (occurrence: US)
  Receive Date: 20160803
  Receipt Date: 20160921
  Transmission Date: 20161109
  Serious: No
  Sender: FDA-Public Use
  Company Number: US-GLAXOSMITHKLINE-US2016GSK110287

PATIENT
  Age: 54 Year
  Sex: Female
  Weight: 47.62 kg

DRUGS (2)
  1. SUMATRIPTAN SUCCINATE SOLUTION FOR INJECTION IN PRE-FILLED PEN [Suspect]
     Active Substance: SUMATRIPTAN SUCCINATE
     Dosage: UNK
  2. SUMATRIPTAN SUCCINATE SOLUTION FOR INJECTION IN PRE-FILLED PEN [Suspect]
     Active Substance: SUMATRIPTAN SUCCINATE
     Indication: MIGRAINE
     Dosage: 6 MG, PRN

REACTIONS (7)
  - Ligament sprain [Not Recovered/Not Resolved]
  - Device leakage [Unknown]
  - Foot fracture [Not Recovered/Not Resolved]
  - Tendon injury [Not Recovered/Not Resolved]
  - Fall [Unknown]
  - Product quality issue [Unknown]
  - Ligament injury [Not Recovered/Not Resolved]

NARRATIVE: CASE EVENT DATE: 20160703
